FAERS Safety Report 7218274-0 (Version None)
Quarter: 2011Q1

REPORT INFORMATION
  Report Type: 
  Country: None (occurrence: None)
  Receive Date: 20110110
  Receipt Date: 20110105
  Transmission Date: 20110831
  Serious: Yes (Other)
  Sender: FDA-Public Use
  Company Number: US-B.I. PHARMACEUTICALS,INC./RIDGEFIELD-2010-BP-13480BP

PATIENT
  Age: 73 Year
  Sex: Male
  Weight: 139.71 kg

DRUGS (1)
  1. PRADAXA [Suspect]
     Indication: ATRIAL FIBRILLATION
     Dosage: 300 MG
     Route: 048
     Dates: end: 20101115

REACTIONS (6)
  - URTICARIA [None]
  - ADVERSE DRUG REACTION [None]
  - DYSPHONIA [None]
  - LOCAL SWELLING [None]
  - ANAPHYLACTIC REACTION [None]
  - SWELLING FACE [None]
